FAERS Safety Report 9346765 (Version 2)
Quarter: 2013Q3

REPORT INFORMATION
  Report Type: Spontaneous
  Country: US (occurrence: GB)
  Receive Date: 20130613
  Receipt Date: 20130930
  Transmission Date: 20140515
  Serious: Yes (Hospitalization, Other)
  Sender: FDA-Public Use
  Company Number: US-ASTRAZENECA-2013SE27234

PATIENT
  Age: 73 Year
  Sex: Female
  Weight: 50.8 kg

DRUGS (11)
  1. NEXIUM [Suspect]
     Indication: GASTROOESOPHAGEAL REFLUX DISEASE
     Dosage: 40 MG ONE TO TWO TIMES A DAY
     Route: 048
     Dates: start: 2002
  2. LOSEC [Concomitant]
     Dosage: 11 YEARS AGO
  3. FOLIC ACID [Concomitant]
     Indication: BLOOD DISORDER
  4. LEVO THYROXIN [Concomitant]
  5. BENDROFLUMETHIAZIDE [Concomitant]
     Indication: BLOOD PRESSURE ABNORMAL
     Dosage: 2.5
  6. URSODEOXYCHOLIC ACID [Concomitant]
     Indication: PROPHYLAXIS
  7. CALCICHEW D3 [Concomitant]
  8. VITAMIN D [Concomitant]
  9. RIVAROXABAN [Concomitant]
     Indication: PROPHYLAXIS
  10. WARFARIN [Concomitant]
     Dates: start: 2007, end: 2008
  11. CLOXIN [Concomitant]
     Dates: start: 2008, end: 2012

REACTIONS (14)
  - Femur fracture [Unknown]
  - Fall [Unknown]
  - Hip fracture [Unknown]
  - Femoral neck fracture [Unknown]
  - Pulmonary embolism [Unknown]
  - Osteoporosis [Unknown]
  - Bone disorder [Unknown]
  - Multiple fractures [Unknown]
  - Rib fracture [Unknown]
  - Arthritis [Unknown]
  - Osteopenia [Unknown]
  - Groin pain [Unknown]
  - Balance disorder [Unknown]
  - Arthralgia [Unknown]
